FAERS Safety Report 25168887 (Version 1)
Quarter: 2025Q2

REPORT INFORMATION
  Report Type: Spontaneous
  Country: US (occurrence: US)
  Receive Date: 20250407
  Receipt Date: 20250407
  Transmission Date: 20250717
  Serious: No
  Sender: INTRA-CELLULAR THERAPIES
  Company Number: US-INTRA-CELLULAR THERAPIES, INC.-2025ICT00241

PATIENT
  Sex: Female
  Weight: 117.91 kg

DRUGS (1)
  1. CAPLYTA [Suspect]
     Active Substance: LUMATEPERONE
     Indication: Bipolar II disorder
     Dosage: 42 MG, ONCE DAILY AT BEDTIME
     Route: 048
     Dates: start: 20231025, end: 20250214

REACTIONS (5)
  - Food allergy [Not Recovered/Not Resolved]
  - Dairy intolerance [Unknown]
  - Illness [Unknown]
  - Throat irritation [Unknown]
  - Treatment noncompliance [Recovered/Resolved]

NARRATIVE: CASE EVENT DATE: 20240101
